FAERS Safety Report 10551414 (Version 1)
Quarter: 2014Q4

REPORT INFORMATION
  Report Type: Spontaneous
  Country: GB (occurrence: None)
  Receive Date: 20141027
  Receipt Date: 20141027
  Transmission Date: 20150529
  Serious: Yes (Other)
  Sender: FDA-Public Use
  Company Number: 2014284175

PATIENT
  Age: 30 Year
  Sex: Female
  Weight: 118.5 kg

DRUGS (3)
  1. CITALOPRAM (CITALOPRAM) [Concomitant]
     Active Substance: CITALOPRAM HYDROBROMIDE
  2. CHLORPHENAMINE (CHLORPHENAMINE) [Concomitant]
  3. FRAGMIN [Suspect]
     Active Substance: DALTEPARIN SODIUM
     Indication: DEEP VEIN THROMBOSIS
     Dates: start: 20140902, end: 20141002

REACTIONS (2)
  - Maternal exposure during pregnancy [None]
  - Vision blurred [None]

NARRATIVE: CASE EVENT DATE: 20140902
